FAERS Safety Report 9381973 (Version 2)
Quarter: 2013Q3

REPORT INFORMATION
  Report Type: Spontaneous
  Country: CN (occurrence: CN)
  Receive Date: 20130703
  Receipt Date: 20130723
  Transmission Date: 20140515
  Serious: Yes (Life-Threatening, Hospitalization)
  Sender: FDA-Public Use
  Company Number: CN-BRACCO-000476

PATIENT
  Age: 76 Year
  Sex: Female

DRUGS (1)
  1. IOPAMIRO [Suspect]
     Indication: COMPUTERISED TOMOGRAM ABDOMEN
     Route: 042
     Dates: start: 20130630, end: 20130630

REACTIONS (3)
  - Cerebral infarction [Not Recovered/Not Resolved]
  - Blood pressure decreased [Unknown]
  - Laryngeal oedema [Unknown]
